FAERS Safety Report 25353477 (Version 1)
Quarter: 2025Q2

REPORT INFORMATION
  Report Type: Spontaneous
  Country: DE (occurrence: DE)
  Receive Date: 20250523
  Receipt Date: 20250523
  Transmission Date: 20250716
  Serious: Yes (Death)
  Sender: Unknown Manufacturer
  Company Number: DE-MIRUM PHARMACEUTICALS, INC.-DE-MIR-25-00277

PATIENT

DRUGS (1)
  1. LIVMARLI [Suspect]
     Active Substance: MARALIXIBAT CHLORIDE
     Indication: Alagille syndrome
     Route: 065

REACTIONS (1)
  - Hepatic failure [Fatal]
